FAERS Safety Report 25567218 (Version 1)
Quarter: 2025Q3

REPORT INFORMATION
  Report Type: Spontaneous
  Country: US (occurrence: US)
  Receive Date: 20250716
  Receipt Date: 20250716
  Transmission Date: 20251020
  Serious: Yes (Other)
  Sender: NOVO NORDISK
  Company Number: US-NOVOPROD-1338771

PATIENT
  Age: 55 Year
  Sex: Female
  Weight: 74.84 kg

DRUGS (40)
  1. OZEMPIC [Suspect]
     Active Substance: SEMAGLUTIDE
     Indication: Type 2 diabetes mellitus
     Dosage: 0.25 MG, QW
     Dates: start: 20230302, end: 20230908
  2. OZEMPIC [Suspect]
     Active Substance: SEMAGLUTIDE
     Dosage: 0.50 MG, QW
     Dates: start: 20230908, end: 20240104
  3. METOPROLOL SUCCINATE [Concomitant]
     Active Substance: METOPROLOL SUCCINATE
     Indication: Hypertension
     Dates: start: 20171118
  4. CYCLOBENZAPRINE [Concomitant]
     Active Substance: CYCLOBENZAPRINE
     Indication: Muscle relaxant therapy
     Dates: start: 20170504
  5. IBUPROFEN [Concomitant]
     Active Substance: IBUPROFEN
     Indication: Pain
     Dates: start: 20170504
  6. ATORVASTATIN [Concomitant]
     Active Substance: ATORVASTATIN
     Indication: Blood cholesterol increased
     Dates: start: 20171127
  7. LISINOPRIL [Concomitant]
     Active Substance: LISINOPRIL
     Indication: Hypertension
     Dates: start: 20210823
  8. CLOPIDOGREL [Concomitant]
     Active Substance: CLOPIDOGREL BISULFATE
     Indication: Prophylaxis
     Dates: start: 20170210
  9. VENTOLIN HFA [Concomitant]
     Active Substance: ALBUTEROL SULFATE
     Indication: Chronic obstructive pulmonary disease
     Dates: start: 20180523
  10. OXYCODONE AND ACETAMINOPHEN [Concomitant]
     Active Substance: ACETAMINOPHEN\OXYCODONE HYDROCHLORIDE
     Indication: Pain
     Dates: start: 20180705
  11. NITROGLYCERIN [Concomitant]
     Active Substance: NITROGLYCERIN
     Indication: Chest pain
     Dates: start: 20170925
  12. FUROSEMIDE [Concomitant]
     Active Substance: FUROSEMIDE
     Indication: Oedema
     Dates: start: 20171218, end: 20230802
  13. CLONIDINE [Concomitant]
     Active Substance: CLONIDINE
     Indication: Hypertension
     Dates: start: 20180530, end: 20230403
  14. HYDROXYZINE PAMOATE [Concomitant]
     Active Substance: HYDROXYZINE PAMOATE
     Indication: Anxiety
     Dates: start: 20180515
  15. NYSTOP [Concomitant]
     Active Substance: NYSTATIN
     Indication: Fungal infection
     Dates: start: 20210203
  16. ASPIRIN [Concomitant]
     Active Substance: ASPIRIN
     Indication: Prophylaxis
     Dates: start: 20210823
  17. FLUTICASONE [Concomitant]
     Active Substance: FLUTICASONE
     Indication: Hypersensitivity
     Dates: start: 20210701
  18. BACITRACIN ZINC AND POLYMYXIN B SULFATE [Concomitant]
     Active Substance: BACITRACIN ZINC\POLYMYXIN B SULFATE
     Indication: Eye infection
     Dates: start: 20230428, end: 20230528
  19. HUMULIN R [Concomitant]
     Active Substance: INSULIN HUMAN
     Indication: Type 2 diabetes mellitus
     Dates: start: 20171027, end: 20230722
  20. LANTUS SOLOSTAR [Concomitant]
     Active Substance: INSULIN GLARGINE
     Indication: Type 2 diabetes mellitus
     Dates: start: 20210423, end: 20230526
  21. HUMALOG [Concomitant]
     Active Substance: INSULIN LISPRO
     Indication: Type 2 diabetes mellitus
     Dates: start: 20200130
  22. SERTRALINE [Concomitant]
     Active Substance: SERTRALINE HYDROCHLORIDE
     Indication: Depression
  23. SERTRALINE [Concomitant]
     Active Substance: SERTRALINE HYDROCHLORIDE
     Indication: Anxiety
     Dates: start: 20190305
  24. INSULIN GLARGINE [Concomitant]
     Active Substance: INSULIN GLARGINE
     Indication: Type 2 diabetes mellitus
     Dates: start: 20230511
  25. AMIODARONE [Concomitant]
     Active Substance: AMIODARONE
     Dates: start: 20230530, end: 20231105
  26. AMIODARONE [Concomitant]
     Active Substance: AMIODARONE
     Indication: Heart rate irregular
     Dates: start: 20230530
  27. ELIQUIS [Concomitant]
     Active Substance: APIXABAN
     Indication: Anticoagulant therapy
     Dates: start: 20230530
  28. ESCITALOPRAM [Concomitant]
     Active Substance: ESCITALOPRAM OXALATE
     Indication: Depression
  29. ESCITALOPRAM [Concomitant]
     Active Substance: ESCITALOPRAM OXALATE
     Indication: Anxiety
     Dates: start: 20230608
  30. FARXIGA [Concomitant]
     Active Substance: DAPAGLIFLOZIN PROPANEDIOL
     Indication: Type 2 diabetes mellitus
     Dates: start: 20230718
  31. BUMETANIDE [Concomitant]
     Active Substance: BUMETANIDE
     Indication: Oedema
     Dates: start: 20230724
  32. SPIRONOLACTONE [Concomitant]
     Active Substance: SPIRONOLACTONE
     Indication: Hypertension
     Dates: start: 20230724
  33. PANTOPRAZOLE [Concomitant]
     Active Substance: PANTOPRAZOLE
     Indication: Gastrooesophageal reflux disease
     Dates: start: 20230930
  34. EZETIMIBE [Concomitant]
     Active Substance: EZETIMIBE
     Indication: Blood cholesterol increased
     Dates: start: 20231017
  35. PROAIR HFA [Concomitant]
     Active Substance: ALBUTEROL SULFATE
     Indication: Wheezing
     Dates: start: 20210615, end: 20231017
  36. MINERALS\VITAMINS [Concomitant]
     Active Substance: MINERALS\VITAMINS
     Indication: Vitamin supplementation
     Dates: start: 20230810
  37. FERROUS SULFATE [Concomitant]
     Active Substance: FERROUS SULFATE
     Indication: Iron deficiency
     Dates: start: 20230627
  38. POTASSIUM CHLORIDE [Concomitant]
     Active Substance: POTASSIUM CHLORIDE
     Indication: Hypokalaemia
     Dates: start: 20230720, end: 20231020
  39. SODIUM CHLORIDE [Concomitant]
     Active Substance: SODIUM CHLORIDE
     Indication: Dehydration
     Dates: start: 20231025
  40. NALOXONE [Concomitant]
     Active Substance: NALOXONE
     Indication: Product used for unknown indication
     Dates: start: 20230503, end: 20230703

REACTIONS (7)
  - Impaired gastric emptying [Not Recovered/Not Resolved]
  - Gastrointestinal disorder [Not Recovered/Not Resolved]
  - Anxiety [Unknown]
  - Depression [Unknown]
  - Dyspepsia [Not Recovered/Not Resolved]
  - Constipation [Not Recovered/Not Resolved]
  - Off label use [Unknown]

NARRATIVE: CASE EVENT DATE: 20230201
